FAERS Safety Report 15272119 (Version 1)
Quarter: 2018Q3

REPORT INFORMATION
  Report Type: Spontaneous
  Country: US (occurrence: US)
  Receive Date: 20180813
  Receipt Date: 20180813
  Transmission Date: 20181010
  Serious: Yes (Hospitalization)
  Sender: FDA-Public Use
  Company Number: US-SA-2018SA160726

PATIENT
  Age: 82 Year
  Sex: Female
  Weight: 60 kg

DRUGS (22)
  1. ROBITUSSIN [DEXTROMETHORPHAN HYDROBROMIDE;ETHANOL;GUAIFENESIN] [Concomitant]
     Indication: COUGH
     Dosage: UNK
     Dates: start: 20180414
  2. LIPITOR [Concomitant]
     Active Substance: ATORVASTATIN CALCIUM
     Indication: HYPERLIPIDAEMIA
     Dosage: UNK
  3. FLAGYL [METRONIDAZOLE] [Concomitant]
     Indication: ANTI-INFECTIVE THERAPY
     Dosage: 500 MG, TID
     Route: 048
     Dates: start: 20180414, end: 20180414
  4. PROVENTIL [SALBUTAMOL] [Concomitant]
     Indication: ASTHMA
     Dosage: UNK
     Dates: start: 20180414
  5. METOPROLOL SUCCINATE. [Concomitant]
     Active Substance: METOPROLOL SUCCINATE
     Indication: HYPERTENSION
     Dosage: UNK
  6. PEPCID [FAMOTIDINE] [Concomitant]
     Indication: GASTROOESOPHAGEAL REFLUX DISEASE
     Dosage: UNK
     Dates: start: 20180414
  7. NEURONTIN [Concomitant]
     Active Substance: GABAPENTIN
     Indication: PAIN
     Dosage: UNK
  8. OXYCODONE [Concomitant]
     Active Substance: OXYCODONE
     Indication: PAIN
     Dosage: UNK
  9. FLUTICASONE FUROATE;VILANTEROL [Concomitant]
     Indication: PNEUMONIA
     Dosage: UNK
  10. VANTIN [CEFPODOXIME PROXETIL] [Concomitant]
     Indication: PNEUMONIA
     Dosage: UNK
     Dates: start: 20180414, end: 20180416
  11. ATROVENT [Concomitant]
     Active Substance: IPRATROPIUM BROMIDE
     Indication: PNEUMONIA
  12. TYLENOL [Concomitant]
     Active Substance: ACETAMINOPHEN
     Indication: PAIN
     Dosage: UNK
     Dates: start: 20180414
  13. DESYREL [Concomitant]
     Active Substance: TRAZODONE HYDROCHLORIDE
     Indication: DEPRESSION
     Dosage: UNK
  14. MUCINEX [Concomitant]
     Active Substance: GUAIFENESIN
     Indication: PNEUMONIA
     Dosage: UNK
     Dates: start: 20180414
  15. COLACE [Concomitant]
     Active Substance: DOCUSATE SODIUM
     Indication: CONSTIPATION PROPHYLAXIS
     Dosage: UNK
  16. ATROVENT [Concomitant]
     Active Substance: IPRATROPIUM BROMIDE
     Indication: ASTHMA
     Dosage: UNK
     Dates: start: 20180414
  17. LACTOBACILLUS ACIDOPHILUS [Concomitant]
     Active Substance: LACTOBACILLUS ACIDOPHILUS
     Indication: PROPHYLAXIS
     Dosage: UNK
     Dates: start: 20180414
  18. LOVENOX [Suspect]
     Active Substance: ENOXAPARIN SODIUM
     Indication: DEEP VEIN THROMBOSIS
     Dosage: UNK
     Dates: start: 20180414, end: 20180416
  19. LOTENSIN [BENAZEPRIL HYDROCHLORIDE] [Concomitant]
     Indication: HYPERTENSION
     Dosage: UNK
  20. VITAMIN D [ERGOCALCIFEROL] [Concomitant]
     Indication: PROPHYLAXIS
     Dosage: UNK
  21. DELTASONE [PREDNISONE] [Concomitant]
     Indication: PNEUMONIA
     Dosage: UNK
     Dates: start: 20180414, end: 20180415
  22. APRESOLINE HYDROCHLORIDE [Concomitant]
     Active Substance: HYDRALAZINE HYDROCHLORIDE
     Indication: HYPERTENSION
     Dosage: UNK

REACTIONS (2)
  - Vomiting [Recovered/Resolved]
  - Nausea [Recovered/Resolved]

NARRATIVE: CASE EVENT DATE: 20180414
